FAERS Safety Report 23493011 (Version 1)
Quarter: 2024Q1

REPORT INFORMATION
  Report Type: Report from Study
  Country: KR (occurrence: KR)
  Receive Date: 20240207
  Receipt Date: 20240207
  Transmission Date: 20240410
  Serious: Yes (Hospitalization)
  Sender: FDA-Public Use
  Company Number: KR-BAYER-2024A018095

PATIENT
  Age: 63 Year
  Sex: Male

DRUGS (1)
  1. EYLEA [Suspect]
     Active Substance: AFLIBERCEPT
     Indication: Diabetic retinal oedema
     Dosage: 1 DF, EITHER THE LEFT OR RIGHT EYE, SOLUTION FOR INJECTION, 40MG/ML
     Dates: start: 20211109

REACTIONS (1)
  - Retinal operation [Unknown]
